FAERS Safety Report 10656908 (Version 1)
Quarter: 2014Q4

REPORT INFORMATION
  Report Type: Spontaneous
  Country: GB (occurrence: None)
  Receive Date: 20141215
  Receipt Date: 20141215
  Transmission Date: 20150529
  Serious: Yes (Death, Other)
  Sender: FDA-Public Use
  Company Number: 2014COR00140

PATIENT
  Age: 14 Year
  Sex: Male

DRUGS (2)
  1. ZONISAMIDE (ZONISAMIDE) UNKNOWN [Suspect]
     Active Substance: ZONISAMIDE
     Indication: EPILEPSY
  2. UNSPECIFIED ANTI-EPILPETIC DRUGS (UNKNOWN) [Concomitant]

REACTIONS (4)
  - Status epilepticus [None]
  - Drug withdrawal convulsions [None]
  - Weight decreased [None]
  - Asthenia [None]
